FAERS Safety Report 14730092 (Version 2)
Quarter: 2018Q2

REPORT INFORMATION
  Report Type: Spontaneous
  Country: US (occurrence: US)
  Receive Date: 20180406
  Receipt Date: 20180406
  Transmission Date: 20180711
  Serious: Yes (Death)
  Sender: FDA-Public Use
  Company Number: US-CELGENEUS-USA-20180401609

PATIENT
  Sex: Male

DRUGS (1)
  1. POMALYST [Suspect]
     Active Substance: POMALIDOMIDE
     Indication: PLASMA CELL MYELOMA
     Dosage: 4 MILLIGRAM
     Route: 048
     Dates: start: 20170117, end: 20180212

REACTIONS (6)
  - Influenza [Fatal]
  - Respiratory failure [Fatal]
  - Death [Fatal]
  - Renal failure [Fatal]
  - Pneumonia pseudomonal [Fatal]
  - Liver injury [Fatal]

NARRATIVE: CASE EVENT DATE: 20180304
